FAERS Safety Report 4571827-0 (Version None)
Quarter: 2005Q1

REPORT INFORMATION
  Report Type: 
  Country: None (occurrence: None)
  Receive Date: 20050207
  Receipt Date: 20050124
  Transmission Date: 20050727
  Serious: Yes (Death, Hospitalization)
  Sender: FDA-Public Use
  Company Number: FR-MERCK-0501FRA00087

PATIENT
  Age: 75 Year
  Sex: Female

DRUGS (9)
  1. VIOXX [Suspect]
     Indication: SCIATICA
     Route: 048
     Dates: start: 20030901, end: 20031212
  2. FLUINDIONE [Suspect]
     Indication: THROMBOSIS PROPHYLAXIS
     Route: 048
     Dates: end: 20031212
  3. CANDESARTAN CILEXETIL [Concomitant]
     Indication: HYPERTENSION
     Route: 048
     Dates: end: 20031212
  4. CIFENLINE SUCCINATE [Concomitant]
     Indication: ATRIAL FIBRILLATION
     Route: 048
     Dates: end: 20031212
  5. METOPROLOL [Concomitant]
     Indication: HYPERTENSION
     Route: 048
     Dates: end: 20031212
  6. METOPROLOL [Concomitant]
     Indication: ATRIAL FIBRILLATION
     Route: 048
     Dates: end: 20031212
  7. ZOCOR [Concomitant]
     Indication: HYPERCHOLESTEROLAEMIA
     Route: 048
     Dates: end: 20031212
  8. ALLOPURINOL [Concomitant]
     Indication: GOUT
     Route: 048
     Dates: end: 20031212
  9. TERBUTALINE SULFATE [Concomitant]
     Route: 055

REACTIONS (10)
  - ARRHYTHMIA [None]
  - BLOOD GLUCOSE DECREASED [None]
  - BLOOD PRESSURE SYSTOLIC INCREASED [None]
  - CEREBRAL HAEMATOMA [None]
  - CEREBROVASCULAR ACCIDENT [None]
  - COMA [None]
  - DRUG INTERACTION [None]
  - HYPOTHERMIA [None]
  - INTERNATIONAL NORMALISED RATIO INCREASED [None]
  - RHONCHI [None]
